FAERS Safety Report 6388745-8 (Version None)
Quarter: 2009Q4

REPORT INFORMATION
  Report Type: 
  Country: None (occurrence: None)
  Receive Date: 20091002
  Receipt Date: 20091002
  Transmission Date: 20100525
  Serious: Yes (Death, Life-Threatening, Hospitalization)
  Sender: FDA-Public Use
  Company Number: None

PATIENT
  Sex: Female
  Weight: 47.2648 kg

DRUGS (2)
  1. INH 300MG VERSA PHARM [Suspect]
     Indication: TUBERCULOSIS
     Dosage: 300MG DAILY BY MOUTH
     Route: 048
     Dates: start: 20090512, end: 20090624
  2. INH 300MG VERSA PHARM [Suspect]

REACTIONS (1)
  - HEPATITIS [None]
